FAERS Safety Report 16711828 (Version 2)
Quarter: 2019Q3

REPORT INFORMATION
  Report Type: Spontaneous
  Country: JP (occurrence: JP)
  Receive Date: 20190816
  Receipt Date: 20190913
  Transmission Date: 20191004
  Serious: Yes (Hospitalization, Other)
  Sender: FDA-Public Use
  Company Number: JP-ABBVIE-19P-087-2873249-00

PATIENT
  Sex: Male

DRUGS (2)
  1. RANMARK [Concomitant]
     Active Substance: DENOSUMAB
     Indication: PRODUCT USED FOR UNKNOWN INDICATION
     Route: 065
  2. LEUPLIN SR [Suspect]
     Active Substance: LEUPROLIDE ACETATE
     Indication: PROSTATE CANCER
     Dosage: 11.25 MILLIGRAM, Q3MONTHS
     Route: 058

REACTIONS (2)
  - Pyelonephritis [Recovered/Resolved]
  - Ureteral stent insertion [Unknown]

NARRATIVE: CASE EVENT DATE: 20190626
